FAERS Safety Report 9951361 (Version 1)
Quarter: 2014Q1

REPORT INFORMATION
  Report Type: Report from Study
  Country: US (occurrence: US)
  Receive Date: 20140304
  Receipt Date: 20140304
  Transmission Date: 20141002
  Serious: No
  Sender: FDA-Public Use
  Company Number: US-ABBVIE-13P-163-1070398-00

PATIENT
  Age: 49 Year
  Sex: Female

DRUGS (12)
  1. HUMIRA [Suspect]
     Dates: start: 20121015
  2. VERAPAMIL [Concomitant]
     Indication: HYPERTENSION
  3. LOPRESSOR [Concomitant]
     Indication: BLOOD PRESSURE
  4. FUROSEMIDE [Concomitant]
     Indication: SWELLING
  5. FUROSEMIDE [Concomitant]
     Indication: FLUID RETENTION
  6. GABAPENTIN [Concomitant]
  7. SOMA [Concomitant]
     Indication: MUSCLE RELAXANT THERAPY
  8. LORTAB [Concomitant]
     Indication: PAIN
     Dosage: 10/325MG
  9. LORTAB [Concomitant]
     Indication: PSORIATIC ARTHROPATHY
  10. BENADRYL [Concomitant]
     Indication: HYPERSENSITIVITY
  11. FLONASE [Concomitant]
     Indication: HYPERSENSITIVITY
  12. VITAMINS NOS [Concomitant]
     Indication: VITAMIN SUPPLEMENTATION

REACTIONS (4)
  - Wrong technique in drug usage process [Not Recovered/Not Resolved]
  - Injection site haemorrhage [Not Recovered/Not Resolved]
  - Injection site discomfort [Not Recovered/Not Resolved]
  - Injection site bruising [Not Recovered/Not Resolved]
